FAERS Safety Report 6846101-X (Version None)
Quarter: 2010Q3

REPORT INFORMATION
  Report Type: 
  Country: None (occurrence: None)
  Receive Date: 20100715
  Receipt Date: 20080522
  Transmission Date: 20110219
  Serious: No
  Sender: FDA-Public Use
  Company Number: US-PFIZER INC-2007073317

PATIENT
  Sex: Male
  Weight: 105.69 kg

DRUGS (14)
  1. CHANTIX [Suspect]
     Indication: SMOKING CESSATION THERAPY
     Dates: start: 20070901, end: 20070101
  2. LOXAPINE [Concomitant]
     Route: 048
  3. SEROQUEL [Concomitant]
     Route: 048
  4. ALL OTHER THERAPEUTIC PRODUCTS [Concomitant]
     Route: 048
  5. ZONISAMIDE [Concomitant]
     Route: 048
  6. DIGOXIN [Concomitant]
     Indication: CARDIAC DISORDER
     Route: 048
  7. METOPROLOL [Concomitant]
     Route: 048
  8. BENZTROPINE MESYLATE [Concomitant]
     Route: 048
  9. FUROSEMIDE [Concomitant]
     Route: 048
  10. LASIX [Concomitant]
     Route: 048
  11. POTASSIUM CHLORIDE [Concomitant]
     Route: 048
  12. GEMFIBROZIL [Concomitant]
     Route: 048
  13. MAGNESIUM CHLORIDE ANHYDROUS [Concomitant]
     Route: 048
  14. VITAMIN C [Concomitant]
     Route: 048

REACTIONS (1)
  - DRUG EFFECT DECREASED [None]
